FAERS Safety Report 7804181-9 (Version None)
Quarter: 2011Q4

REPORT INFORMATION
  Report Type: 
  Country: None (occurrence: None)
  Receive Date: 20111010
  Receipt Date: 20111004
  Transmission Date: 20120403
  Serious: Yes (Other)
  Sender: FDA-Public Use
  Company Number: US-AMGEN-USASP2011049388

PATIENT
  Age: 57 Year
  Sex: Female

DRUGS (1)
  1. ENBREL [Suspect]
     Indication: RHEUMATOID ARTHRITIS
     Dosage: 50 MG, QWK
     Dates: start: 20060210

REACTIONS (7)
  - PAIN IN EXTREMITY [None]
  - STRESS [None]
  - OEDEMA PERIPHERAL [None]
  - SLEEP DISORDER [None]
  - JAW DISORDER [None]
  - PAIN [None]
  - RHEUMATOID ARTHRITIS [None]
